FAERS Safety Report 22278390 (Version 4)
Quarter: 2024Q4

REPORT INFORMATION
  Report Type: Report from Study
  Country: US (occurrence: US)
  Receive Date: 20230503
  Receipt Date: 20241114
  Transmission Date: 20250115
  Serious: Yes (Other)
  Sender: NOVARTIS
  Company Number: US-002147023-NVSC2023US100997

PATIENT
  Sex: Female

DRUGS (1)
  1. PIQRAY [Suspect]
     Active Substance: ALPELISIB
     Indication: Product used for unknown indication
     Dosage: 300 MG, QD
     Route: 048
     Dates: start: 20230530, end: 20240625

REACTIONS (5)
  - Breast cancer [Unknown]
  - Eating disorder [Unknown]
  - Blood glucose increased [Unknown]
  - Weight decreased [Unknown]
  - Product physical issue [Unknown]
